FAERS Safety Report 18913222 (Version 1)
Quarter: 2021Q1

REPORT INFORMATION
  Report Type: Spontaneous
  Country: US (occurrence: US)
  Receive Date: 20210218
  Receipt Date: 20210218
  Transmission Date: 20210420
  Serious: No
  Sender: FDA-Public Use
  Company Number: US-TAKEDA-2021TUS008222

PATIENT

DRUGS (2)
  1. VONVENDI [Suspect]
     Active Substance: VON WILLEBRAND FACTOR (RECOMBINANT)
     Indication: PRODUCT USED FOR UNKNOWN INDICATION
     Dosage: 1240 INTERNATIONAL UNIT
     Route: 065
  2. VONVENDI [Suspect]
     Active Substance: VON WILLEBRAND FACTOR (RECOMBINANT)
     Dosage: 705 INTERNATIONAL UNIT
     Route: 065

REACTIONS (2)
  - Product temperature excursion issue [Unknown]
  - No adverse event [Unknown]
